FAERS Safety Report 24624697 (Version 2)
Quarter: 2024Q4

REPORT INFORMATION
  Report Type: Report from Study
  Country: US (occurrence: US)
  Receive Date: 20241115
  Receipt Date: 20241204
  Transmission Date: 20250115
  Serious: Yes (Hospitalization, Other)
  Sender: ABBVIE
  Company Number: US-ABBVIE-6001636

PATIENT
  Age: 23 Year
  Sex: Male
  Weight: 96 kg

DRUGS (5)
  1. HUMIRA [Suspect]
     Active Substance: ADALIMUMAB
     Indication: Crohn^s disease
     Route: 058
     Dates: start: 20241104
  2. HUMIRA [Suspect]
     Active Substance: ADALIMUMAB
     Dosage: CITRATE FREE
     Route: 058
     Dates: start: 2016, end: 20241029
  3. CHOLECALCIFEROL [Concomitant]
     Active Substance: CHOLECALCIFEROL
     Indication: Vitamin supplementation
  4. FLONASE [Concomitant]
     Active Substance: FLUTICASONE PROPIONATE
     Indication: Nasal disorder
  5. PREDNISONE [Concomitant]
     Active Substance: PREDNISONE
     Indication: Rash

REACTIONS (10)
  - Spinal cord lipoma [Recovering/Resolving]
  - Dysuria [Recovering/Resolving]
  - Lipoma [Recovering/Resolving]
  - Sensory loss [Recovering/Resolving]
  - Dermatitis contact [Unknown]
  - Urinary tract infection [Recovered/Resolved]
  - Urinary incontinence [Recovering/Resolving]
  - Rash [Recovering/Resolving]
  - Hypertonic bladder [Recovering/Resolving]
  - Rash [Recovering/Resolving]

NARRATIVE: CASE EVENT DATE: 20200101
